FAERS Safety Report 23693878 (Version 3)
Quarter: 2025Q3

REPORT INFORMATION
  Report Type: Report from Study
  Country: US (occurrence: US)
  Receive Date: 20240401
  Receipt Date: 20250912
  Transmission Date: 20251021
  Serious: Yes (Hospitalization, Other)
  Sender: ABBVIE
  Company Number: US-ABBVIE-5532066

PATIENT
  Age: 49 Year
  Sex: Male
  Weight: 76 kg

DRUGS (10)
  1. HUMIRA [Suspect]
     Active Substance: ADALIMUMAB
     Indication: Ankylosing spondylitis
     Dosage: DOSE FORM-SOLUTION FOR INJECTION IN PRE-FILLED SYRINGE?FORM STRENGTH: 40MG
     Route: 058
     Dates: start: 20151023
  2. HUMIRA [Suspect]
     Active Substance: ADALIMUMAB
     Indication: Ankylosing spondylitis
     Dosage: DOSE FORM: SOLUTION FOR INJECTION IN PRE-FILLED PEN?DOSAGE TEXT?FORM STRENGTH: 40MG
     Route: 058
  3. HUMIRA [Suspect]
     Active Substance: ADALIMUMAB
     Route: 058
     Dates: start: 20120102
  4. IBUPROFEN [Concomitant]
     Active Substance: IBUPROFEN
     Indication: Product used for unknown indication
  5. BACTRIM [Concomitant]
     Active Substance: SULFAMETHOXAZOLE\TRIMETHOPRIM
     Indication: Product used for unknown indication
  6. ACETAMINOPHEN [Concomitant]
     Active Substance: ACETAMINOPHEN
     Indication: Product used for unknown indication
  7. VANCOMYCIN [Concomitant]
     Active Substance: VANCOMYCIN
     Indication: Product used for unknown indication
  8. ZOSYN [Concomitant]
     Active Substance: PIPERACILLIN SODIUM\TAZOBACTAM SODIUM
     Indication: Product used for unknown indication
  9. OXYMETAZOLINE [Concomitant]
     Active Substance: OXYMETAZOLINE
     Indication: Product used for unknown indication
  10. LIDOCAINE [Concomitant]
     Active Substance: LIDOCAINE
     Indication: Product used for unknown indication

REACTIONS (24)
  - Bacterial infection [Recovered/Resolved]
  - Nasal operation [Unknown]
  - Chills [Unknown]
  - Dyspnoea [Unknown]
  - Road traffic accident [Unknown]
  - Viral infection [Recovered/Resolved]
  - Tenderness [Recovering/Resolving]
  - Headache [Unknown]
  - Nasal crusting [Unknown]
  - Ankylosing spondylitis [Unknown]
  - Pain [Recovering/Resolving]
  - Impaired healing [Unknown]
  - Immunodeficiency [Unknown]
  - Musculoskeletal stiffness [Not Recovered/Not Resolved]
  - Erythema [Unknown]
  - Nasal obstruction [Unknown]
  - Oedema [Recovering/Resolving]
  - Nasal congestion [Recovering/Resolving]
  - Weight decreased [Not Recovered/Not Resolved]
  - Back pain [Not Recovered/Not Resolved]
  - Immunodeficiency [Unknown]
  - Stress [Not Recovered/Not Resolved]
  - Bacterial infection [Not Recovered/Not Resolved]
  - Nasal abscess [Unknown]

NARRATIVE: CASE EVENT DATE: 20210901
